FAERS Safety Report 13886181 (Version 6)
Quarter: 2018Q3

REPORT INFORMATION
  Report Type: Spontaneous
  Country: ES (occurrence: ES)
  Receive Date: 20170821
  Receipt Date: 20180920
  Transmission Date: 20181010
  Serious: Yes (Other)
  Sender: FDA-Public Use
  Company Number: ES-PFIZER INC-2017355377

PATIENT
  Age: 27 Year
  Sex: Female

DRUGS (4)
  1. SPIRONOLACTONE. [Suspect]
     Active Substance: SPIRONOLACTONE
     Indication: SUICIDE ATTEMPT
     Dosage: 625 MG, SINGLE
     Route: 048
  2. LOPERAMIDE [Suspect]
     Active Substance: LOPERAMIDE
     Indication: SUICIDE ATTEMPT
     Dosage: 20 MG, SINGLE
     Route: 048
  3. IVABRADINE [Suspect]
     Active Substance: IVABRADINE
     Indication: SUICIDE ATTEMPT
     Dosage: 235 MG, SINGLE
     Route: 048
     Dates: end: 2008
  4. LOSARTAN POTASSIUM. [Suspect]
     Active Substance: LOSARTAN POTASSIUM
     Indication: SUICIDE ATTEMPT
     Dosage: 350 MG, SINGLE
     Route: 048

REACTIONS (3)
  - Haemodynamic instability [Recovered/Resolved]
  - Bradycardia [Recovered/Resolved]
  - Overdose [Unknown]
